FAERS Safety Report 7590437-4 (Version None)
Quarter: 2011Q3

REPORT INFORMATION
  Report Type: 
  Country: None (occurrence: None)
  Receive Date: 20110705
  Receipt Date: 20110622
  Transmission Date: 20111222
  Serious: Yes (Life-Threatening, Disabling, Other)
  Sender: FDA-Public Use
  Company Number: US-BAYER-2011-054314

PATIENT
  Sex: Female

DRUGS (1)
  1. AVELOX [Suspect]
     Dosage: 400 MG, QD
     Route: 048
     Dates: start: 20110601, end: 20110601

REACTIONS (9)
  - FEELING ABNORMAL [None]
  - GENERALISED ERYTHEMA [None]
  - ANAPHYLACTIC REACTION [None]
  - BLOOD PRESSURE SYSTOLIC DECREASED [None]
  - SYNCOPE [None]
  - NAUSEA [None]
  - ABDOMINAL DISTENSION [None]
  - HYPERHIDROSIS [None]
  - FAECAL INCONTINENCE [None]
